FAERS Safety Report 4350682-8 (Version None)
Quarter: 2004Q2

REPORT INFORMATION
  Report Type: 
  Country: None (occurrence: None)
  Receive Date: 20040428
  Receipt Date: 20040422
  Transmission Date: 20050107
  Serious: Yes (Death, Life-Threatening, Hospitalization)
  Sender: FDA-Public Use
  Company Number: FRWYE545129JAN04

PATIENT
  Age: 35 Year
  Sex: Male

DRUGS (3)
  1. RAPAMUNE [Suspect]
     Indication: PROPHYLAXIS AGAINST TRANSPLANT REJECTION
     Dosage: 6 MG 1 X PER 1 DAY
     Route: 048
     Dates: start: 20030904, end: 20040113
  2. CORTANCYL (PRENISONE) [Concomitant]
  3. CELLCEPT [Concomitant]

REACTIONS (12)
  - ACUTE PULMONARY OEDEMA [None]
  - CARDIAC FAILURE ACUTE [None]
  - CARDIAC FLUTTER [None]
  - CARDIOGENIC SHOCK [None]
  - CONGESTIVE CARDIOMYOPATHY [None]
  - HEPATIC FAILURE [None]
  - LACTIC ACIDOSIS [None]
  - MITRAL VALVE INCOMPETENCE [None]
  - MULTI-ORGAN FAILURE [None]
  - PULMONARY EMBOLISM [None]
  - RENAL FAILURE ACUTE [None]
  - VENTRICULAR DYSFUNCTION [None]
